FAERS Safety Report 11863171 (Version 1)
Quarter: 2015Q4

REPORT INFORMATION
  Report Type: Spontaneous
  Country: SE (occurrence: SE)
  Receive Date: 20151223
  Receipt Date: 20151223
  Transmission Date: 20160305
  Serious: Yes (Hospitalization)
  Sender: FDA-Public Use
  Company Number: SE-ASTRAZENECA-2015SF28074

PATIENT
  Age: 81 Year
  Sex: Female

DRUGS (20)
  1. LEVAXIN [Concomitant]
     Active Substance: LEVOTHYROXINE SODIUM
  2. OXASCAND [Concomitant]
     Active Substance: OXAZEPAM
  3. OMEPRAZOL [Concomitant]
     Active Substance: OMEPRAZOLE
  4. ATORVASTATIN [Concomitant]
     Active Substance: ATORVASTATIN
  5. ALVEDON [Concomitant]
     Active Substance: ACETAMINOPHEN
  6. LAMOTRIGINE. [Concomitant]
     Active Substance: LAMOTRIGINE
  7. VOLTAREN [Concomitant]
     Active Substance: DICLOFENAC SODIUM
  8. METOPROLOL [Concomitant]
     Active Substance: METOPROLOL
  9. ABSENOR [Concomitant]
  10. WARAN [Concomitant]
     Active Substance: WARFARIN SODIUM
  11. LASIX [Concomitant]
     Active Substance: FUROSEMIDE
  12. NIFEREX [Concomitant]
     Active Substance: IRON\POLYSACCHARIDES
  13. EKLIRA GENUAIR [Suspect]
     Active Substance: ACLIDINIUM BROMIDE
     Indication: PULMONARY FIBROSIS
     Route: 055
     Dates: start: 20151106, end: 20151125
  14. DIAZEPAM. [Concomitant]
     Active Substance: DIAZEPAM
     Route: 054
  15. AMIAS [Concomitant]
     Active Substance: CANDESARTAN CILEXETIL
  16. ALLOPURINOL. [Concomitant]
     Active Substance: ALLOPURINOL
  17. CITALOPRAM [Concomitant]
     Active Substance: CITALOPRAM HYDROBROMIDE
  18. NITROGLYCERIN. [Concomitant]
     Active Substance: NITROGLYCERIN
     Route: 060
  19. STESOLID NOVUM [Concomitant]
  20. SIFROL [Concomitant]
     Active Substance: PRAMIPEXOLE

REACTIONS (4)
  - Nausea [Unknown]
  - Urinary retention [Not Recovered/Not Resolved]
  - Tremor [Unknown]
  - Acute kidney injury [Not Recovered/Not Resolved]

NARRATIVE: CASE EVENT DATE: 20151122
